FAERS Safety Report 11814994 (Version 2)
Quarter: 2016Q3

REPORT INFORMATION
  Report Type: Spontaneous
  Country: US (occurrence: US)
  Receive Date: 20151209
  Receipt Date: 20160912
  Transmission Date: 20161109
  Serious: No
  Sender: FDA-Public Use
  Company Number: US-SA-2015SA148384

PATIENT
  Age: 69 Year
  Sex: Female

DRUGS (3)
  1. SOLOSTAR [Concomitant]
     Active Substance: DEVICE
     Dates: start: 201507
  2. TOUJEO [Suspect]
     Active Substance: INSULIN GLARGINE
     Indication: TYPE 1 DIABETES MELLITUS
     Dosage: DOSE:17 UNIT(S)
     Route: 065
  3. TOUJEO [Suspect]
     Active Substance: INSULIN GLARGINE
     Indication: TYPE 1 DIABETES MELLITUS
     Dosage: DOSE:17 UNIT(S)
     Route: 065
     Dates: start: 201507

REACTIONS (2)
  - Product use issue [Unknown]
  - Eye disorder [Unknown]
